FAERS Safety Report 8163701-8 (Version None)
Quarter: 2012Q1

REPORT INFORMATION
  Report Type: 
  Country: None (occurrence: None)
  Receive Date: 20120224
  Receipt Date: 20120210
  Transmission Date: 20120608
  Serious: Yes (Other)
  Sender: FDA-Public Use
  Company Number: PHHY2012JP014196

PATIENT
  Age: 61 Year
  Sex: Female

DRUGS (3)
  1. SANDOSTATIN [Suspect]
     Dosage: 2 DF DAILY
     Route: 058
  2. SANDOSTATIN [Suspect]
     Dosage: 3 DF DAILY
     Route: 058
  3. SANDOSTATIN [Suspect]
     Indication: GASTROINTESTINAL OBSTRUCTION
     Dosage: 2 DF DAILY
     Route: 058

REACTIONS (4)
  - PAIN [None]
  - DRY SKIN [None]
  - NAUSEA [None]
  - TERMINAL STATE [None]
